FAERS Safety Report 13817366 (Version 1)
Quarter: 2017Q3

REPORT INFORMATION
  Report Type: Spontaneous
  Country: GB (occurrence: GB)
  Receive Date: 20170731
  Receipt Date: 20170731
  Transmission Date: 20171127
  Serious: Yes (Other)
  Sender: FDA-Public Use
  Company Number: PHHY2017GB109542

PATIENT

DRUGS (1)
  1. AMANTADINE. [Suspect]
     Active Substance: AMANTADINE HYDROCHLORIDE
     Indication: CRANIOCEREBRAL INJURY
     Route: 065

REACTIONS (2)
  - Product use in unapproved indication [Unknown]
  - Seizure [Unknown]
